FAERS Safety Report 6425834-3 (Version None)
Quarter: 2009Q4

REPORT INFORMATION
  Report Type: 
  Country: None (occurrence: None)
  Receive Date: 20091103
  Receipt Date: 20081215
  Transmission Date: 20100525
  Serious: No
  Sender: FDA-Public Use
  Company Number: US-ABBOTT-08P-163-0493028-00

PATIENT
  Sex: Male

DRUGS (3)
  1. BIAXIN [Suspect]
     Indication: HELICOBACTER INFECTION
     Route: 048
     Dates: start: 20081212
  2. PREVACID [Suspect]
     Indication: HELICOBACTER INFECTION
     Route: 048
     Dates: start: 20081212
  3. AMOXICILLIN [Suspect]
     Indication: HELICOBACTER INFECTION
     Route: 048
     Dates: start: 20081212

REACTIONS (1)
  - RENAL PAIN [None]
